FAERS Safety Report 9479632 (Version 1)
Quarter: 2013Q3

REPORT INFORMATION
  Report Type: Spontaneous
  Country: BR (occurrence: BR)
  Receive Date: 20130827
  Receipt Date: 20130827
  Transmission Date: 20140515
  Serious: Yes (Other)
  Sender: FDA-Public Use
  Company Number: PHHY2013BR092909

PATIENT
  Sex: Female

DRUGS (4)
  1. TRILEPTAL [Suspect]
     Indication: PANIC DISORDER
     Dosage: 1 DF, QD
     Route: 048
  2. TRILEPTAL [Suspect]
     Indication: OFF LABEL USE
  3. TECTA [Suspect]
     Indication: GASTRITIS
     Dosage: 1 DF, QD
     Route: 048
     Dates: start: 201307
  4. ASSERT [Concomitant]
     Indication: DEPRESSION
     Dosage: 1.5 DF, QD
     Route: 048
     Dates: start: 2009

REACTIONS (2)
  - Helicobacter infection [Recovered/Resolved]
  - Headache [Recovered/Resolved]
